FAERS Safety Report 9655615 (Version 1)
Quarter: 2013Q4

REPORT INFORMATION
  Report Type: Spontaneous
  Country: US (occurrence: US)
  Receive Date: 20131030
  Receipt Date: 20131030
  Transmission Date: 20140711
  Serious: No
  Sender: FDA-Public Use
  Company Number: US-B.I. PHARMACEUTICALS,INC./RIDGEFIELD-2013-BI-33299BP

PATIENT
  Age: 73 Year
  Sex: Male
  Weight: 100 kg

DRUGS (5)
  1. COMBIVENT [Suspect]
     Indication: CHRONIC OBSTRUCTIVE PULMONARY DISEASE
     Dosage: STRENGTH: 20 MCG / 100 MCG;
     Route: 055
     Dates: start: 201308
  2. ASPIRIN [Concomitant]
     Dosage: (TABLET)
     Route: 048
  3. ADVAIR [Concomitant]
     Indication: CHRONIC OBSTRUCTIVE PULMONARY DISEASE
     Dosage: (INHALATION AEROSOL)
     Route: 055
  4. SPIRIVA [Concomitant]
     Indication: CHRONIC OBSTRUCTIVE PULMONARY DISEASE
     Dosage: (CAPSULE) STRENGTH: 18 MCG; DAILY DOSE: 18 MCG
     Route: 055
     Dates: start: 2004
  5. BLOOD PRESSURE PILL [Concomitant]
     Indication: HYPERTENSION
     Dosage: (TABLET)
     Route: 048

REACTIONS (1)
  - Drug ineffective [Not Recovered/Not Resolved]
